FAERS Safety Report 10440642 (Version 1)
Quarter: 2014Q3

REPORT INFORMATION
  Report Type: Spontaneous
  Country: IT (occurrence: IT)
  Receive Date: 20140909
  Receipt Date: 20140909
  Transmission Date: 20150326
  Serious: Yes (Hospitalization, Other)
  Sender: FDA-Public Use
  Company Number: IT-JNJFOC-20140905946

PATIENT
  Age: 91 Year
  Sex: Female

DRUGS (8)
  1. INDOBUFEN [Concomitant]
     Active Substance: INDOBUFEN
     Indication: PRODUCT USED FOR UNKNOWN INDICATION
     Route: 048
  2. KOLIBRI [Suspect]
     Active Substance: ACETAMINOPHEN\TRAMADOL HYDROCHLORIDE
     Indication: INJURY
     Route: 048
     Dates: start: 20140816, end: 20140823
  3. EUTIROX [Concomitant]
     Active Substance: LEVOTHYROXINE SODIUM
     Indication: PRODUCT USED FOR UNKNOWN INDICATION
     Route: 048
  4. CLASTEON [Concomitant]
     Indication: PRODUCT USED FOR UNKNOWN INDICATION
     Route: 048
  5. ZOLOFT [Concomitant]
     Active Substance: SERTRALINE HYDROCHLORIDE
     Indication: PRODUCT USED FOR UNKNOWN INDICATION
     Route: 048
  6. CARVIPRESS [Concomitant]
     Active Substance: CARVEDILOL
     Indication: PRODUCT USED FOR UNKNOWN INDICATION
     Route: 048
  7. CACIT NOS [Concomitant]
     Indication: PRODUCT USED FOR UNKNOWN INDICATION
     Route: 048
  8. OMEPRAZOLE. [Concomitant]
     Active Substance: OMEPRAZOLE
     Indication: PRODUCT USED FOR UNKNOWN INDICATION
     Route: 065

REACTIONS (3)
  - Sopor [Recovering/Resolving]
  - Drug prescribing error [Recovered/Resolved]
  - Psychomotor skills impaired [Recovering/Resolving]

NARRATIVE: CASE EVENT DATE: 20140816
